FAERS Safety Report 7587006-9 (Version None)
Quarter: 2011Q3

REPORT INFORMATION
  Report Type: 
  Country: None (occurrence: None)
  Receive Date: 20110701
  Receipt Date: 20110622
  Transmission Date: 20111222
  Serious: Yes (Hospitalization)
  Sender: FDA-Public Use
  Company Number: PHHY2011US26689

PATIENT
  Sex: Male

DRUGS (2)
  1. EXJADE [Suspect]
     Indication: MALIGNANT NEOPLASM OF PLACENTA
     Dosage: 1750 MG, DAILY
     Route: 048
     Dates: start: 20100721, end: 20110309
  2. EXJADE [Suspect]
     Indication: ACUTE MYELOID LEUKAEMIA

REACTIONS (2)
  - THROMBOSIS [None]
  - MEDICAL DEVICE COMPLICATION [None]
